FAERS Safety Report 9477799 (Version 2)
Quarter: 2013Q3

REPORT INFORMATION
  Report Type: Report from Study
  Country: MX (occurrence: MX)
  Receive Date: 20130827
  Receipt Date: 20130827
  Transmission Date: 20140515
  Serious: Yes (Death, Hospitalization, Other)
  Sender: FDA-Public Use
  Company Number: MX-BRISTOL-MYERS SQUIBB COMPANY-15273725

PATIENT
  Age: 89 Year
  Sex: Male

DRUGS (6)
  1. WARFARIN SODIUM [Suspect]
     Indication: EMBOLISM
     Dosage: INTERRUPTED ON 01SEP2010
     Route: 048
     Dates: start: 20100421
  2. ENOXAPARIN SODIUM [Suspect]
     Indication: EMBOLISM
  3. PLACEBO [Suspect]
     Indication: EMBOLISM
     Dosage: INTERRUPTED ON 01SEP2010;(10MG WITH APIXABAN ARM AND 3MG WITH WARFARIN ARM)
     Route: 048
     Dates: start: 20100421
  4. ISOSORBIDE [Concomitant]
     Dates: start: 2003
  5. CORDARONE [Concomitant]
     Dates: start: 2003
  6. ENALAPRIL [Concomitant]
     Dates: start: 2003

REACTIONS (3)
  - Respiratory arrest [Fatal]
  - Hypovolaemic shock [Fatal]
  - Gastrointestinal haemorrhage [Fatal]
